FAERS Safety Report 19608521 (Version 1)
Quarter: 2021Q3

REPORT INFORMATION
  Report Type: Spontaneous
  Country: US (occurrence: US)
  Receive Date: 20210723
  Receipt Date: 20210723
  Transmission Date: 20211014
  Serious: Yes (Hospitalization, Disabling)
  Sender: FDA-Public Use
  Company Number: None

PATIENT
  Age: 57 Year
  Sex: Female
  Weight: 108 kg

DRUGS (3)
  1. PROZAC [Concomitant]
     Active Substance: FLUOXETINE HYDROCHLORIDE
  2. NOVOLIN NOS [Suspect]
     Active Substance: INSULIN HUMAN
     Indication: DRUG THERAPY
     Dosage: ?          QUANTITY:1 INJECTION(S);?
     Route: 030
  3. ABILIFY [Concomitant]
     Active Substance: ARIPIPRAZOLE

REACTIONS (3)
  - Depression [None]
  - Mobility decreased [None]
  - Gait disturbance [None]

NARRATIVE: CASE EVENT DATE: 20200428
